FAERS Safety Report 7132232-6 (Version None)
Quarter: 2010Q4

REPORT INFORMATION
  Report Type: 
  Country: None (occurrence: None)
  Receive Date: 20101202
  Receipt Date: 20101122
  Transmission Date: 20110411
  Serious: Yes (Hospitalization)
  Sender: FDA-Public Use
  Company Number: UA-SANOFI-AVENTIS-2010SA071250

PATIENT
  Age: 61 Year
  Sex: Male
  Weight: 94 kg

DRUGS (2)
  1. LANTUS [Suspect]
     Route: 058
     Dates: start: 20100304
  2. INSULIN INJECTION [Concomitant]
     Route: 058
     Dates: start: 20100304

REACTIONS (13)
  - ANAEMIA [None]
  - ARTERIOSCLEROTIC RETINOPATHY [None]
  - ARTERIOVENOUS FISTULA OPERATION [None]
  - BUNDLE BRANCH BLOCK RIGHT [None]
  - CARDIAC FAILURE [None]
  - CARDIOMYOPATHY [None]
  - CATARACT [None]
  - COAGULOPATHY [None]
  - DIABETIC RETINOPATHY [None]
  - HYDROTHORAX [None]
  - NEUROPATHY PERIPHERAL [None]
  - RENAL FAILURE CHRONIC [None]
  - TACHYCARDIA [None]
